FAERS Safety Report 18452482 (Version 1)
Quarter: 2020Q4

REPORT INFORMATION
  Report Type: Report from Study
  Country: US (occurrence: US)
  Receive Date: 20201102
  Receipt Date: 20201102
  Transmission Date: 20210114
  Serious: Yes (Other)
  Sender: FDA-Public Use
  Company Number: US-UCBSA-2020042402

PATIENT
  Age: 69 Year
  Sex: Female

DRUGS (1)
  1. LACOSAMIDE. [Suspect]
     Active Substance: LACOSAMIDE
     Indication: EPILEPSY
     Dosage: (2 TABLETS OF 100 MG AND 1 TABLET OF 50 MG) ONCE DAILY

REACTIONS (2)
  - Product use issue [Unknown]
  - Spinal operation [Recovering/Resolving]

NARRATIVE: CASE EVENT DATE: 20200921
